FAERS Safety Report 5652670-8 (Version None)
Quarter: 2008Q1

REPORT INFORMATION
  Report Type: 
  Country: None (occurrence: None)
  Receive Date: 20080305
  Receipt Date: 20080305
  Transmission Date: 20080703
  Serious: Yes (Hospitalization)
  Sender: FDA-Public Use
  Company Number: None

PATIENT
  Age: 59 Year
  Sex: Female
  Weight: 79.3795 kg

DRUGS (10)
  1. TOPROL-XL [Suspect]
     Indication: CONGESTIVE CARDIOMYOPATHY
     Dates: start: 20010716, end: 20071111
  2. COREG [Suspect]
     Indication: CONGESTIVE CARDIOMYOPATHY
     Dates: start: 20071112, end: 20071114
  3. SYNTHROID [Concomitant]
  4. ATACAND [Concomitant]
  5. NEXIUM [Concomitant]
  6. ALDACTONE [Concomitant]
  7. GLUCOPHAGE [Concomitant]
  8. JANUVIA [Concomitant]
  9. AMBIEN [Concomitant]
  10. BISPOROL [Concomitant]

REACTIONS (8)
  - ANAPHYLACTIC REACTION [None]
  - CHEST PAIN [None]
  - CONTUSION [None]
  - DYSPNOEA [None]
  - INSOMNIA [None]
  - RASH [None]
  - SCAR [None]
  - ULCER [None]
